FAERS Safety Report 5495010-X (Version None)
Quarter: 2007Q4

REPORT INFORMATION
  Report Type: 
  Country: None (occurrence: None)
  Receive Date: 20071024
  Receipt Date: 20071019
  Transmission Date: 20080405
  Serious: Yes (Life-Threatening)
  Sender: FDA-Public Use
  Company Number: US-SHR-US-2007-015078

PATIENT
  Age: 33 Year
  Sex: Female
  Weight: 54.4 kg

DRUGS (1)
  1. MIRENA [Suspect]
     Indication: CONTRACEPTION
     Dosage: 20 A?G/DAY, CONT
     Route: 015
     Dates: start: 20040201, end: 20040801

REACTIONS (2)
  - ANTEPARTUM HAEMORRHAGE [None]
  - PLACENTA ACCRETA [None]
